FAERS Safety Report 13410132 (Version 4)
Quarter: 2017Q2

REPORT INFORMATION
  Report Type: Report from Study
  Country: CA (occurrence: CA)
  Receive Date: 20170406
  Receipt Date: 20170612
  Transmission Date: 20170830
  Serious: Yes (Life-Threatening, Hospitalization)
  Sender: FDA-Public Use
  Company Number: PHHY2017CA049323

PATIENT
  Age: 53 Year
  Sex: Female

DRUGS (8)
  1. NAPROXEN. [Concomitant]
     Active Substance: NAPROXEN
     Indication: PRODUCT USED FOR UNKNOWN INDICATION
     Route: 065
  2. COSENTYX [Suspect]
     Active Substance: SECUKINUMAB
     Dosage: 150 MG, QW
     Route: 058
     Dates: start: 20170418
  3. COSENTYX [Suspect]
     Active Substance: SECUKINUMAB
     Dosage: 150 MG, QW
     Route: 058
     Dates: start: 20170411
  4. NEORAL [Suspect]
     Active Substance: CYCLOSPORINE
     Indication: PRODUCT USED FOR UNKNOWN INDICATION
     Route: 065
  5. COSENTYX [Suspect]
     Active Substance: SECUKINUMAB
     Indication: PSORIASIS
     Dosage: 300 MG, QW
     Route: 058
     Dates: start: 20170328
  6. ACITRETIN. [Concomitant]
     Active Substance: ACITRETIN
     Indication: PRODUCT USED FOR UNKNOWN INDICATION
     Route: 048
  7. METHOTREXATE. [Suspect]
     Active Substance: METHOTREXATE
     Indication: PRODUCT USED FOR UNKNOWN INDICATION
     Route: 065
  8. OTEZLA [Concomitant]
     Active Substance: APREMILAST
     Indication: PRODUCT USED FOR UNKNOWN INDICATION
     Route: 065

REACTIONS (25)
  - Sensation of foreign body [Unknown]
  - Choking [Unknown]
  - Eyelid oedema [Unknown]
  - Stridor [Unknown]
  - Pruritus [Unknown]
  - Tongue disorder [Unknown]
  - Incorrect dose administered [Unknown]
  - Bronchitis [Not Recovered/Not Resolved]
  - Anaphylactic shock [Recovered/Resolved]
  - Dysgeusia [Unknown]
  - Hyperhidrosis [Unknown]
  - Urticaria [Unknown]
  - Dysphagia [Unknown]
  - Vision blurred [Unknown]
  - Nervousness [Unknown]
  - Upper airway obstruction [Unknown]
  - Dizziness [Recovered/Resolved]
  - Productive cough [Unknown]
  - Injection site swelling [Unknown]
  - Pain in extremity [Unknown]
  - Asthma [Unknown]
  - Dyspnoea [Recovered/Resolved]
  - Face oedema [Unknown]
  - Injection site reaction [Recovered/Resolved]
  - Blood pressure increased [Unknown]

NARRATIVE: CASE EVENT DATE: 201703
